FAERS Safety Report 17395829 (Version 1)
Quarter: 2020Q1

REPORT INFORMATION
  Report Type: Spontaneous
  Country: US (occurrence: US)
  Receive Date: 20200210
  Receipt Date: 20200210
  Transmission Date: 20200409
  Serious: Yes (Other)
  Sender: FDA-Public Use
  Company Number: US-INFO-000920

PATIENT
  Sex: Female

DRUGS (1)
  1. SAGENT ROPIVACAINE 0.2% 100 ML BAG [Suspect]
     Active Substance: ROPIVACAINE HYDROCHLORIDE
     Route: 008

REACTIONS (3)
  - Medication error [Unknown]
  - Anaesthetic complication [Unknown]
  - Suspected product quality issue [Unknown]
